FAERS Safety Report 7503808-9 (Version None)
Quarter: 2011Q2

REPORT INFORMATION
  Report Type: 
  Country: None (occurrence: None)
  Receive Date: 20110525
  Receipt Date: 20110517
  Transmission Date: 20111010
  Serious: Yes (Life-Threatening, Hospitalization, Disabling, Other)
  Sender: FDA-Public Use
  Company Number: GR-BRISTOL-MYERS SQUIBB COMPANY-15750904

PATIENT
  Age: 36 Year
  Sex: Female

DRUGS (2)
  1. CAPTOPRIL AND HYDROCHLOROTHIAZIDE [Suspect]
     Dosage: TABS
     Route: 048
     Dates: start: 20090203, end: 20090219
  2. ESCITALOPRAM [Suspect]
     Dosage: TABS;1DF=1/LITRE
     Route: 048
     Dates: start: 20080801, end: 20090305

REACTIONS (1)
  - HEPATITIS CHOLESTATIC [None]
